FAERS Safety Report 25262781 (Version 2)
Quarter: 2025Q2

REPORT INFORMATION
  Report Type: Report from Study
  Country: US (occurrence: US)
  Receive Date: 20250502
  Receipt Date: 20250627
  Transmission Date: 20250717
  Serious: Yes (Other)
  Sender: ABBVIE
  Company Number: US-ABBVIE-6259461

PATIENT
  Sex: Male

DRUGS (1)
  1. RINVOQ [Suspect]
     Active Substance: UPADACITINIB
     Indication: Psoriatic arthropathy
     Route: 048
     Dates: start: 20230301

REACTIONS (5)
  - Abdominal hernia [Unknown]
  - Skin lesion [Unknown]
  - Intervertebral disc degeneration [Unknown]
  - Eructation [Unknown]
  - Arthralgia [Not Recovered/Not Resolved]
